FAERS Safety Report 9334623 (Version 2)
Quarter: 2013Q2

REPORT INFORMATION
  Report Type: Spontaneous
  Country: JP (occurrence: JP)
  Receive Date: 20130606
  Receipt Date: 20130614
  Transmission Date: 20140414
  Serious: Yes (Hospitalization)
  Sender: FDA-Public Use
  Company Number: JP-PFIZER INC-2013168747

PATIENT
  Sex: Male

DRUGS (1)
  1. CORTRIL [Suspect]
     Indication: INFLAMMATION
     Dosage: 20 MG, DAILY
     Route: 048

REACTIONS (2)
  - Prostate cancer [Unknown]
  - Pneumonia [Unknown]
